FAERS Safety Report 12779303 (Version 1)
Quarter: 2016Q3

REPORT INFORMATION
  Report Type: Spontaneous
  Country: IT (occurrence: IT)
  Receive Date: 20160926
  Receipt Date: 20160926
  Transmission Date: 20161109
  Serious: Yes (Other)
  Sender: FDA-Public Use
  Company Number: IT-ROCHE-1834840

PATIENT
  Age: 67 Year
  Sex: Female

DRUGS (7)
  1. RITUXIMAB [Suspect]
     Active Substance: RITUXIMAB
     Indication: ENDOCRINE OPHTHALMOPATHY
     Dosage: FOR 30 MINUTES
     Route: 042
     Dates: start: 201512
  2. PARACETAMOL [Concomitant]
     Active Substance: ACETAMINOPHEN
     Indication: ENDOCRINE OPHTHALMOPATHY
  3. HYDROCORTISONE. [Concomitant]
     Active Substance: HYDROCORTISONE
     Indication: ORBITAL OEDEMA
  4. RITUXIMAB [Suspect]
     Active Substance: RITUXIMAB
     Dosage: 100 MG/HR UP UNTIL THE TOTAL ADMINISTERED DOSE (500 MG).
     Route: 042
  5. RITUXIMAB [Suspect]
     Active Substance: RITUXIMAB
     Dosage: FOR NEXT 30 MINUTES
     Route: 042
  6. CHLORPHENAMINE [Concomitant]
     Active Substance: CHLORPHENIRAMINE MALEATE
     Indication: ENDOCRINE OPHTHALMOPATHY
  7. HYDROCORTISONE. [Concomitant]
     Active Substance: HYDROCORTISONE
     Indication: ENDOCRINE OPHTHALMOPATHY
     Dosage: WAS ADMINISTERED TO CONTROL THE ORBITAL EDEMA
     Route: 065

REACTIONS (1)
  - Orbital oedema [Recovering/Resolving]
